FAERS Safety Report 9646203 (Version 4)
Quarter: 2014Q4

REPORT INFORMATION
  Report Type: Report from Study
  Country: GB (occurrence: GB)
  Receive Date: 20131025
  Receipt Date: 20141117
  Transmission Date: 20150529
  Serious: Yes (Death, Hospitalization)
  Sender: FDA-Public Use
  Company Number: PHFR2013GB005825

PATIENT
  Age: 82 Year
  Sex: Male

DRUGS (8)
  1. LUCENTIS [Suspect]
     Active Substance: RANIBIZUMAB
     Indication: AGE-RELATED MACULAR DEGENERATION
     Dosage: 0.5 MG
     Route: 031
     Dates: start: 20111027
  2. LUCENTIS [Suspect]
     Active Substance: RANIBIZUMAB
     Dosage: 0.5 MG
     Route: 031
     Dates: start: 20130718, end: 20130718
  3. FUROSEMIDE. [Concomitant]
     Active Substance: FUROSEMIDE
     Indication: CARDIAC FAILURE
  4. WARFARIN [Concomitant]
     Active Substance: WARFARIN
     Indication: ATRIAL FIBRILLATION
  5. AMIODARONE [Concomitant]
     Active Substance: AMIODARONE
  6. BISOPROLOL [Suspect]
     Active Substance: BISOPROLOL
  7. LUCENTIS [Suspect]
     Active Substance: RANIBIZUMAB
     Dosage: 0.5 MG
     Route: 031
     Dates: start: 20130517
  8. LUCENTIS [Suspect]
     Active Substance: RANIBIZUMAB
     Dosage: 0.5 MG, UNK
     Route: 031
     Dates: start: 20140325, end: 20140325

REACTIONS (6)
  - Bradycardia [Recovered/Resolved]
  - Cardiac failure [Fatal]
  - Myocardial ischaemia [Fatal]
  - Sinus arrhythmia [Recovered/Resolved]
  - Intestinal ischaemia [Fatal]
  - Atrioventricular block first degree [Recovered/Resolved]

NARRATIVE: CASE EVENT DATE: 20130705
